FAERS Safety Report 15745839 (Version 1)
Quarter: 2018Q4

REPORT INFORMATION
  Report Type: Spontaneous
  Country: GB (occurrence: GB)
  Receive Date: 20181220
  Receipt Date: 20181220
  Transmission Date: 20190205
  Serious: Yes (Other)
  Sender: FDA-Public Use
  Company Number: GB-PFIZER INC-2018512344

PATIENT
  Age: 45 Year
  Sex: Female

DRUGS (2)
  1. CISPLATIN. [Suspect]
     Active Substance: CISPLATIN
     Indication: OVARIAN EPITHELIAL CANCER
     Dosage: UNK (960MG, SIX COURSES)
     Dates: start: 1986
  2. CARBOPLATIN. [Suspect]
     Active Substance: CARBOPLATIN
     Indication: OVARIAN EPITHELIAL CANCER
     Dosage: UNK (SIX COURSES,TOTAL DOSE 3780MG )
     Dates: start: 1986

REACTIONS (2)
  - Second primary malignancy [Unknown]
  - Acute myeloid leukaemia [Unknown]
